FAERS Safety Report 24191982 (Version 1)
Quarter: 2024Q3

REPORT INFORMATION
  Report Type: Report from Study
  Country: CA (occurrence: None)
  Receive Date: 20240809
  Receipt Date: 20240809
  Transmission Date: 20241016
  Serious: Yes (Hospitalization)
  Sender: ASTRAZENECA
  Company Number: 2021A729873

PATIENT
  Sex: Female

DRUGS (2)
  1. FASENRA [Suspect]
     Active Substance: BENRALIZUMAB
     Indication: Asthma
     Dosage: 30.0MG UNKNOWN
     Route: 058
     Dates: start: 20210423
  2. PREDNISONE [Concomitant]
     Active Substance: PREDNISONE

REACTIONS (8)
  - Cystitis [Unknown]
  - Renal disorder [Unknown]
  - Renal cancer [Unknown]
  - Pneumonia [Unknown]
  - Asthma [Unknown]
  - Malaise [Unknown]
  - Malaise [Unknown]
  - Drug ineffective [Unknown]
